FAERS Safety Report 5366130-5 (Version None)
Quarter: 2007Q2

REPORT INFORMATION
  Report Type: 
  Country: None (occurrence: None)
  Receive Date: 20070530
  Receipt Date: 20070115
  Transmission Date: 20071010
  Serious: No
  Sender: FDA-Public Use
  Company Number: 2005PV000111

PATIENT
  Age: 60 Year
  Sex: Female
  Weight: 85.7298 kg

DRUGS (5)
  1. BYETTA [Suspect]
     Indication: DIABETES MELLITUS NON-INSULIN-DEPENDENT
     Dosage: 5 MCG;SC
     Route: 058
     Dates: start: 20050622
  2. AVANDAMET [Concomitant]
  3. HYZAAR [Concomitant]
  4. LIPITOR [Concomitant]
  5. GLUCOPHAGE [Concomitant]

REACTIONS (11)
  - ANOREXIA [None]
  - HEADACHE [None]
  - INJECTION SITE DISCOLOURATION [None]
  - INJECTION SITE DISCOMFORT [None]
  - INJECTION SITE PAIN [None]
  - INJECTION SITE PRURITUS [None]
  - INJECTION SITE REACTION [None]
  - NASAL CONGESTION [None]
  - NAUSEA [None]
  - SINUS DISORDER [None]
  - VOMITING [None]
